FAERS Safety Report 6309653-4 (Version None)
Quarter: 2009Q3

REPORT INFORMATION
  Report Type: 
  Country: None (occurrence: None)
  Receive Date: 20090814
  Receipt Date: 20090803
  Transmission Date: 20100115
  Serious: Yes (Death)
  Sender: FDA-Public Use
  Company Number: LB-ROCHE-649694

PATIENT
  Age: 72 Year
  Sex: Male
  Weight: 73 kg

DRUGS (6)
  1. CAPECITABINE [Suspect]
     Dosage: DAILY: 1-14 DAYS OF 15 DAYS CYCLE
     Route: 048
     Dates: start: 20080521, end: 20081101
  2. ELOXATIN [Suspect]
     Route: 042
     Dates: start: 20080521, end: 20081101
  3. ERBITUX [Concomitant]
     Route: 042
     Dates: start: 20081201, end: 20090201
  4. FOLINIC ACID [Concomitant]
     Route: 042
     Dates: start: 20081201, end: 20090201
  5. FLUOROURACIL [Concomitant]
     Route: 042
     Dates: start: 20081201, end: 20090201
  6. IRINOTECAN HCL [Concomitant]
     Route: 042
     Dates: start: 20081201, end: 20090201

REACTIONS (2)
  - DISEASE PROGRESSION [None]
  - PNEUMONIA [None]
